FAERS Safety Report 19281564 (Version 1)
Quarter: 2021Q2

REPORT INFORMATION
  Report Type: Spontaneous
  Country: NL (occurrence: NL)
  Receive Date: 20210521
  Receipt Date: 20210521
  Transmission Date: 20210717
  Serious: Yes (Hospitalization)
  Sender: FDA-Public Use
  Company Number: NL-TEVA-2021-NL-1912527

PATIENT
  Sex: Female
  Weight: 59 kg

DRUGS (2)
  1. DILTIAZEM TABLET MGA 120MG / BRAND NAME NOT SPECIFIED [Suspect]
     Active Substance: DILTIAZEM
     Indication: PRODUCT USED FOR UNKNOWN INDICATION
     Dosage: 2X HALF TABLET:UNIT DOSE:60MILLIGRAM
     Dates: start: 20210211, end: 20210330
  2. ACETYLSALICYLZUUR / BRAND NAME NOT SPECIFIED [Concomitant]
     Dosage: THERAPY START DATE:THERAPY END DATE :ASKU

REACTIONS (3)
  - Anxiety [Recovered/Resolved]
  - Blood pressure fluctuation [Recovered/Resolved]
  - Depressed mood [Recovered/Resolved]
